FAERS Safety Report 5213965-5 (Version None)
Quarter: 2007Q1

REPORT INFORMATION
  Report Type: 
  Country: None (occurrence: None)
  Receive Date: 20070122
  Receipt Date: 20070112
  Transmission Date: 20070707
  Serious: Yes (Other)
  Sender: FDA-Public Use
  Company Number: PHNU2007DE00442

PATIENT
  Age: 71 Year
  Sex: Male

DRUGS (6)
  1. PROVASIN TAB [Suspect]
     Indication: CORONARY ARTERY DISEASE
     Dosage: 40 MG, QD
     Route: 048
     Dates: start: 20061205, end: 20061205
  2. RAMIPRIL [Concomitant]
     Indication: MYOCARDIAL INFARCTION
     Route: 048
  3. ISOKET RETARD [Concomitant]
     Indication: MYOCARDIAL INFARCTION
     Route: 048
  4. FUROSEMIDE [Concomitant]
     Indication: MYOCARDIAL INFARCTION
  5. GLYBURIDE [Concomitant]
     Indication: DIABETES MELLITUS NON-INSULIN-DEPENDENT
     Route: 048
  6. METFORMIN [Concomitant]
     Indication: DIABETES MELLITUS NON-INSULIN-DEPENDENT

REACTIONS (1)
  - HALLUCINATION, VISUAL [None]
